FAERS Safety Report 18919986 (Version 2)
Quarter: 2021Q1

REPORT INFORMATION
  Report Type: Spontaneous
  Country: HU (occurrence: HU)
  Receive Date: 20210222
  Receipt Date: 20210316
  Transmission Date: 20210420
  Serious: Yes (Congenital Anomaly, Other)
  Sender: FDA-Public Use
  Company Number: HU-AMGEN-HUNSP2021020409

PATIENT

DRUGS (2)
  1. ENBREL [Suspect]
     Active Substance: ETANERCEPT
     Indication: EXPOSURE DURING PREGNANCY
     Dosage: 50 MILLIGRAM, QWK
     Route: 064
  2. CLEXANE [Concomitant]
     Active Substance: ENOXAPARIN SODIUM
     Indication: FACTOR V LEIDEN MUTATION
     Dosage: UNK, 0.8, 2X
     Route: 064

REACTIONS (3)
  - Maternal exposure during pregnancy [Unknown]
  - Foetal cardiac disorder [Unknown]
  - Coarctation of the aorta [Unknown]
